FAERS Safety Report 8328998-X (Version None)
Quarter: 2012Q2

REPORT INFORMATION
  Report Type: 
  Country: None (occurrence: None)
  Receive Date: 20120502
  Receipt Date: 20120423
  Transmission Date: 20120825
  Serious: Yes (Hospitalization)
  Sender: FDA-Public Use
  Company Number: FR-JNJFOC-20120411827

PATIENT
  Sex: Female

DRUGS (7)
  1. FUROSEMIDE [Concomitant]
  2. ACETAMINOPHEN [Concomitant]
  3. ASPIRIN [Concomitant]
  4. XARELTO [Suspect]
     Indication: THROMBOSIS PROPHYLAXIS
     Route: 048
     Dates: start: 20120327, end: 20120405
  5. XARELTO [Suspect]
     Indication: KNEE ARTHROPLASTY
     Route: 048
     Dates: start: 20120327, end: 20120405
  6. TRAMADOL HCL [Concomitant]
  7. OMEPRAZOLE [Concomitant]

REACTIONS (1)
  - THROMBOSIS [None]
